FAERS Safety Report 5511923-4 (Version None)
Quarter: 2007Q4

REPORT INFORMATION
  Report Type: 
  Country: None (occurrence: None)
  Receive Date: 20071109
  Receipt Date: 20071106
  Transmission Date: 20080405
  Serious: No
  Sender: FDA-Public Use
  Company Number: DE-WYE-G00401507

PATIENT
  Age: 70 Year
  Sex: Female

DRUGS (1)
  1. CLIMOPAX MONO [Suspect]
     Indication: MENOPAUSAL SYMPTOMS
     Route: 048
     Dates: start: 20020101, end: 20070901

REACTIONS (1)
  - COUGH [None]
